FAERS Safety Report 7403498-X (Version None)
Quarter: 2011Q2

REPORT INFORMATION
  Report Type: 
  Country: None (occurrence: None)
  Receive Date: 20110408
  Receipt Date: 20110405
  Transmission Date: 20111010
  Serious: Yes (Other)
  Sender: FDA-Public Use
  Company Number: US-PFIZER INC-2011075490

PATIENT
  Sex: Male
  Weight: 51.701 kg

DRUGS (2)
  1. IBUPROFEN (ADVIL) [Suspect]
     Indication: PYREXIA
     Dosage: UNK
     Route: 048
     Dates: start: 20100601
  2. ACETAMINOPHEN [Concomitant]
     Indication: PYREXIA
     Dosage: 1000 MG, 1X/DAY
     Route: 048
     Dates: start: 20100822

REACTIONS (2)
  - OVERDOSE [None]
  - HEPATIC STEATOSIS [None]
